FAERS Safety Report 9521449 (Version 2)
Quarter: 2013Q4

REPORT INFORMATION
  Report Type: Spontaneous
  Country: PE (occurrence: PE)
  Receive Date: 20130913
  Receipt Date: 20131017
  Transmission Date: 20140711
  Serious: Yes (Death)
  Sender: FDA-Public Use
  Company Number: PE-PFIZER INC-2013263819

PATIENT
  Age: 25 Year
  Sex: Female

DRUGS (1)
  1. LYRICA [Suspect]
     Indication: HYPOAESTHESIA
     Dosage: 75 MG, 1X/DAY
     Route: 048
     Dates: start: 201207, end: 201301

REACTIONS (2)
  - Metastases to central nervous system [Fatal]
  - Off label use [Unknown]
